FAERS Safety Report 7885196-1 (Version None)
Quarter: 2011Q4

REPORT INFORMATION
  Report Type: 
  Country: None (occurrence: None)
  Receive Date: 20111102
  Receipt Date: 20111031
  Transmission Date: 20120403
  Serious: Yes (Hospitalization, Other)
  Sender: FDA-Public Use
  Company Number: US-PFIZER INC-2011111775

PATIENT
  Sex: Male

DRUGS (1)
  1. CHANTIX [Suspect]
     Indication: SMOKING CESSATION THERAPY
     Dosage: 0.5 MG, 2X/DAY
     Dates: start: 20090422, end: 20090509

REACTIONS (5)
  - FOOT FRACTURE [None]
  - CONCUSSION [None]
  - GAIT DISTURBANCE [None]
  - INJURY [None]
  - MOBILITY DECREASED [None]
